FAERS Safety Report 7896448-3 (Version None)
Quarter: 2011Q4

REPORT INFORMATION
  Report Type: 
  Country: None (occurrence: None)
  Receive Date: 20111106
  Receipt Date: 20110909
  Transmission Date: 20120403
  Serious: No
  Sender: FDA-Public Use
  Company Number: US-AMGEN-USASP2011046520

PATIENT
  Age: 9 Year
  Sex: Male
  Weight: 24.036 kg

DRUGS (1)
  1. ENBREL [Suspect]
     Indication: JUVENILE ARTHRITIS
     Dosage: 25 MG, QWK
     Route: 058
     Dates: start: 20110902

REACTIONS (2)
  - INJECTION SITE RASH [None]
  - INJECTION SITE ERYTHEMA [None]
